FAERS Safety Report 24277063 (Version 2)
Quarter: 2024Q4

REPORT INFORMATION
  Report Type: Spontaneous
  Country: GB (occurrence: GB)
  Receive Date: 20240903
  Receipt Date: 20241002
  Transmission Date: 20250115
  Serious: Yes (Death, Hospitalization)
  Sender: MYLAN
  Company Number: GB-MYLANLABS-2024M1080212

PATIENT
  Age: 64 Year
  Sex: Female
  Weight: 80.8 kg

DRUGS (20)
  1. CLOZARIL [Suspect]
     Active Substance: CLOZAPINE
     Indication: Schizophrenia
     Dosage: 200 MILLIGRAM, QD (200MG/DAY)
     Route: 048
     Dates: start: 20210506
  2. CLOZARIL [Suspect]
     Active Substance: CLOZAPINE
     Dosage: 100 MILLIGRAM, QD (GRADUAL REDUCTION OF CLOZAPINE (100MG/DAY))
     Route: 048
     Dates: start: 202106, end: 2022
  3. CLOZARIL [Suspect]
     Active Substance: CLOZAPINE
     Dosage: UNK
     Route: 048
     Dates: start: 202206
  4. CLOZARIL [Suspect]
     Active Substance: CLOZAPINE
     Dosage: 75 MILLIGRAM, QD
     Route: 048
     Dates: start: 202210
  5. CLOZARIL [Suspect]
     Active Substance: CLOZAPINE
     Dosage: 50 MILLIGRAM, QD
     Route: 048
     Dates: start: 202305
  6. CLOZARIL [Suspect]
     Active Substance: CLOZAPINE
     Dosage: 37.5 MILLIGRAM, QD
     Route: 048
     Dates: start: 202309
  7. CLOZARIL [Suspect]
     Active Substance: CLOZAPINE
     Dosage: 25 MILLIGRAM, QD (ONCE A DAY AT NIGHT)
     Route: 048
     Dates: start: 202310
  8. ARIPIPRAZOLE [Concomitant]
     Active Substance: ARIPIPRAZOLE
     Dosage: 5 MILLIGRAM, QD (ONCE A DAY)
     Route: 048
  9. SERTRALINE [Concomitant]
     Active Substance: SERTRALINE HYDROCHLORIDE
     Dosage: 100 MILLIGRAM, QD (ONCE A DAY)
     Route: 048
  10. FOLIC ACID [Concomitant]
     Active Substance: FOLIC ACID
     Dosage: 5 MILLIGRAM, QD (ONCE A DAY)
     Route: 048
  11. DOCUSATE [Concomitant]
     Active Substance: DOCUSATE
     Dosage: 100 MILLIGRAM, TID (THREE TIMES A DAY)
     Route: 048
  12. ALBUTEROL [Concomitant]
     Active Substance: ALBUTEROL
     Dosage: UNK, QID (1- 2PUFFS UP TO 4 TIMES A DAY)
     Route: 055
  13. BECLOMETHASONE\FORMOTEROL [Concomitant]
     Active Substance: BECLOMETHASONE\FORMOTEROL
     Dosage: 2 DOSAGE FORM, BID (2 PUFFS TWICE DAILY PLUS 2 PUFFS AS REQUIRED)
     Route: 055
  14. MINERAL OIL\PARAFFIN [Concomitant]
     Active Substance: MINERAL OIL\PARAFFIN
     Dosage: UNK, BID (TWICE A DAY AND WHEN REQUIRED)
     Route: 061
  15. ESTRIOL [Concomitant]
     Active Substance: ESTRIOL
     Dosage: UNK, BIWEEKLY (ONE APPLICATION TWICE A WEEK)
     Route: 061
  16. FOODLINK COMPLETE [Concomitant]
     Dosage: 1 DOSAGE FORM, QD (ONE DAILY WITH 200ML FULL CREAM MILK)
     Route: 048
  17. CLOBETASOL [Concomitant]
     Active Substance: CLOBETASOL
     Dosage: UNK, QD (APPLY ONCE A DAY)
     Route: 061
  18. ACETAMINOPHEN [Concomitant]
     Active Substance: ACETAMINOPHEN
     Dosage: UNK, QID (ONE OR TWO TO BE TAKEN UP EVERY 4- 6HOURS UP TO 4 TIMES/DAY)
     Route: 048
  19. AMISULPRIDE [Concomitant]
     Active Substance: AMISULPRIDE
     Dosage: 200 MILLIGRAM, QD
     Route: 065
  20. AMISULPRIDE [Concomitant]
     Active Substance: AMISULPRIDE
     Dosage: 100 MILLIGRAM, QD
     Route: 065
     Dates: start: 202201

REACTIONS (14)
  - Death [Fatal]
  - Incontinence [Recovered/Resolved]
  - Flushing [Recovered/Resolved]
  - Tremor [Recovered/Resolved]
  - Somnolence [Recovered/Resolved]
  - Pyrexia [Recovered/Resolved]
  - Tachycardia [Unknown]
  - Orthostatic hypotension [Unknown]
  - Salivary hypersecretion [Unknown]
  - Weight increased [Unknown]
  - Urinary incontinence [Unknown]
  - Constipation [Unknown]
  - Drug intolerance [Unknown]
  - Drug ineffective [Unknown]

NARRATIVE: CASE EVENT DATE: 20210501
